FAERS Safety Report 7069486-0 (Version None)
Quarter: 2010Q4

REPORT INFORMATION
  Report Type: 
  Country: None (occurrence: None)
  Receive Date: 20101028
  Receipt Date: 20100107
  Transmission Date: 20110411
  Serious: Yes (Disabling)
  Sender: FDA-Public Use
  Company Number: US-WYE-H12904110

PATIENT
  Sex: Female

DRUGS (1)
  1. EFFEXOR [Suspect]
     Indication: DEPRESSION
     Dosage: 25 MG (FREQUENCY UNSPECIFIED)
     Dates: start: 20090827, end: 20091001

REACTIONS (3)
  - MALAISE [None]
  - RASH PRURITIC [None]
  - URTICARIA [None]
